FAERS Safety Report 20445174 (Version 1)
Quarter: 2022Q1

REPORT INFORMATION
  Report Type: Spontaneous
  Country: JP (occurrence: JP)
  Receive Date: 20220208
  Receipt Date: 20220208
  Transmission Date: 20220423
  Serious: Yes (Other)
  Sender: FDA-Public Use
  Company Number: JP-ELI_LILLY_AND_COMPANY-JP202202002217

PATIENT
  Age: 85 Year
  Sex: Female

DRUGS (2)
  1. ZYPREXA [Suspect]
     Active Substance: OLANZAPINE
     Indication: Product used for unknown indication
     Dosage: 1.25 MG
     Route: 048
     Dates: end: 20220124
  2. ZYPREXA [Suspect]
     Active Substance: OLANZAPINE
     Dosage: 2.5 MG
     Route: 048
     Dates: start: 20220125

REACTIONS (4)
  - Dementia of the Alzheimer^s type, with delusions [Not Recovered/Not Resolved]
  - Hallucination [Not Recovered/Not Resolved]
  - Wrong technique in product usage process [Recovered/Resolved]
  - Constipation [Unknown]
